FAERS Safety Report 4292486-0 (Version None)
Quarter: 2004Q1

REPORT INFORMATION
  Report Type: 
  Country: None (occurrence: None)
  Receive Date: 20040211
  Receipt Date: 20040202
  Transmission Date: 20041129
  Serious: Yes (Other)
  Sender: FDA-Public Use
  Company Number: PHFR2004GB00875

PATIENT
  Age: 76 Year
  Sex: Female

DRUGS (2)
  1. AREDIA [Suspect]
     Indication: OSTEITIS DEFORMANS
     Dates: start: 20021201
  2. AREDIA [Suspect]
     Dates: start: 20030501

REACTIONS (10)
  - ANOREXIA [None]
  - DIZZINESS [None]
  - DYSPHAGIA [None]
  - EYE IRRITATION [None]
  - FALL [None]
  - HALLUCINATION [None]
  - HYPERHIDROSIS [None]
  - MALAISE [None]
  - MUSCLE CRAMP [None]
  - PARAESTHESIA [None]
